FAERS Safety Report 9492436 (Version 1)
Quarter: 2013Q3

REPORT INFORMATION
  Report Type: Spontaneous
  Country: US (occurrence: US)
  Receive Date: 20130830
  Receipt Date: 20130830
  Transmission Date: 20140515
  Serious: Yes (Other)
  Sender: FDA-Public Use
  Company Number: CHPA2013US013468

PATIENT
  Age: 62 Year
  Sex: Female

DRUGS (2)
  1. TRANSDERM SCOP [Suspect]
     Indication: MOTION SICKNESS
     Dosage: 1 DF, Q72H
     Route: 062
     Dates: start: 2012
  2. TRANSDERM SCOP [Suspect]
     Dosage: 1 UNK, UNK
     Route: 062
     Dates: end: 20130818

REACTIONS (11)
  - Vertigo [Recovering/Resolving]
  - Abasia [Recovering/Resolving]
  - Inner ear inflammation [Unknown]
  - Balance disorder [Not Recovered/Not Resolved]
  - Nausea [Recovering/Resolving]
  - Dizziness [Recovering/Resolving]
  - Vision blurred [Recovering/Resolving]
  - Impaired driving ability [Recovering/Resolving]
  - Activities of daily living impaired [Recovering/Resolving]
  - Somnolence [Unknown]
  - Dry mouth [Recovered/Resolved]
